FAERS Safety Report 20005035 (Version 1)
Quarter: 2021Q4

REPORT INFORMATION
  Report Type: Report from Study
  Country: None (occurrence: US)
  Receive Date: 20211028
  Receipt Date: 20211028
  Transmission Date: 20220303
  Serious: Yes (Hospitalization)
  Sender: FDA-Public Use
  Company Number: US-ABBVIE-21K-163-4126141-00

PATIENT
  Sex: Male

DRUGS (1)
  1. VENCLEXTA [Suspect]
     Active Substance: VENETOCLAX
     Indication: Chronic lymphocytic leukaemia
     Route: 048
     Dates: start: 202003

REACTIONS (7)
  - Gait inability [Unknown]
  - Dyspnoea [Unknown]
  - Dysstasia [Unknown]
  - Hospitalisation [Unknown]
  - Lung disorder [Unknown]
  - Adrenal mass [Unknown]
  - Unevaluable event [Unknown]
